FAERS Safety Report 8504856-2 (Version None)
Quarter: 2012Q3

REPORT INFORMATION
  Report Type: 
  Country: None (occurrence: None)
  Receive Date: 20120712
  Receipt Date: 20120705
  Transmission Date: 20120928
  Serious: Yes (Death)
  Sender: FDA-Public Use
  Company Number: US-009507513-2010SP056507

PATIENT

DRUGS (4)
  1. MINERALS (UNSPECIFIED) (+) VITAMINS (UNSPECIFIED) [Concomitant]
     Indication: PREGNANCY
     Dosage: 1 TAB
     Dates: start: 20101017
  2. MK-4031 [Suspect]
     Indication: HEPATITIS C
     Dosage: 80 A?G, QW
     Route: 058
     Dates: start: 20091101, end: 20100916
  3. AMOXICILLIN [Concomitant]
     Indication: SINUSITIS
     Dosage: 150 MG, QD
     Dates: start: 20101016
  4. RIBAVIRIN [Suspect]
     Indication: HEPATITIS C
     Dosage: 800 MG, QD
     Route: 048
     Dates: start: 20091101, end: 20100916

REACTIONS (2)
  - SINUSITIS [None]
  - MATERNAL EXPOSURE DURING PREGNANCY [None]
